FAERS Safety Report 8000153-2 (Version None)
Quarter: 2011Q4

REPORT INFORMATION
  Report Type: 
  Country: None (occurrence: None)
  Receive Date: 20111220
  Receipt Date: 20111220
  Transmission Date: 20120403
  Serious: Yes (Hospitalization)
  Sender: FDA-Public Use
  Company Number: None

PATIENT
  Sex: Male
  Weight: 71 kg

DRUGS (1)
  1. CYTARABINE [Suspect]
     Dosage: 11280 MG
     Dates: end: 20111115

REACTIONS (4)
  - HEPATITIS B [None]
  - DISEASE RECURRENCE [None]
  - ALANINE AMINOTRANSFERASE [None]
  - ASPARTATE AMINOTRANSFERASE INCREASED [None]
